FAERS Safety Report 9602089 (Version 1)
Quarter: 2013Q4

REPORT INFORMATION
  Report Type: Spontaneous
  Country: US (occurrence: None)
  Receive Date: 20131002
  Receipt Date: 20131002
  Transmission Date: 20140711
  Serious: Yes (Other)
  Sender: FDA-Public Use
  Company Number: FK201304364

PATIENT
  Age: 55 Year
  Sex: Male

DRUGS (1)
  1. ACICLOVIR (MANUFACTURER UNKNOWN) (ACICLOVIR) (ACICLOVIR) [Suspect]
     Indication: PRODUCT USED FOR UNKNOWN INDICATION

REACTIONS (1)
  - Drug reaction with eosinophilia and systemic symptoms [None]
